FAERS Safety Report 9345317 (Version 1)
Quarter: 2013Q2

REPORT INFORMATION
  Report Type: Report from Study
  Country: CA (occurrence: CA)
  Receive Date: 20130613
  Receipt Date: 20130613
  Transmission Date: 20140414
  Serious: Yes (Other)
  Sender: FDA-Public Use
  Company Number: CA-ROCHE-1236110

PATIENT
  Age: 52 Year
  Sex: Female

DRUGS (8)
  1. PEGASYS [Suspect]
     Indication: HEPATITIS C
     Route: 058
     Dates: start: 20130410, end: 20130524
  2. RIBAVIRIN [Suspect]
     Indication: HEPATITIS C
     Dosage: DAILY
     Route: 048
     Dates: start: 20130410, end: 20130531
  3. EPREX [Suspect]
     Indication: HEPATITIS C
     Route: 058
     Dates: start: 20130410, end: 20130529
  4. CYCLOSPORINE [Concomitant]
  5. PREDNISONE [Concomitant]
  6. CARDIZEM [Concomitant]
  7. AMLODIPINE [Concomitant]
  8. HYDRALAZINE [Concomitant]

REACTIONS (1)
  - White blood cell count decreased [Unknown]
